FAERS Safety Report 9450177 (Version 1)
Quarter: 2013Q3

REPORT INFORMATION
  Report Type: Report from Study
  Country: US (occurrence: US)
  Receive Date: 20130809
  Receipt Date: 20130809
  Transmission Date: 20140515
  Serious: Yes (Hospitalization)
  Sender: FDA-Public Use
  Company Number: US-JNJFOC-20130801802

PATIENT
  Age: 55 Year
  Sex: Female
  Weight: 56.7 kg

DRUGS (34)
  1. REMICADE [Suspect]
     Indication: PSORIATIC ARTHROPATHY
     Route: 042
     Dates: start: 20130523, end: 20130523
  2. REMICADE [Suspect]
     Indication: PSORIATIC ARTHROPATHY
     Route: 042
     Dates: start: 20130731
  3. REMICADE [Suspect]
     Indication: SERONEGATIVE ARTHRITIS
     Route: 042
     Dates: start: 20130731
  4. REMICADE [Suspect]
     Indication: SERONEGATIVE ARTHRITIS
     Route: 042
     Dates: start: 20130523, end: 20130523
  5. DOCUSATE SODIUM [Concomitant]
     Indication: GASTROINTESTINAL MOTILITY DISORDER
     Route: 048
     Dates: start: 2011
  6. NAPROXEN [Concomitant]
     Indication: PAIN
     Route: 048
     Dates: start: 2011
  7. LYRICA [Concomitant]
     Indication: PAIN
     Route: 048
     Dates: start: 2010
  8. CYMBALTA [Concomitant]
     Indication: PAIN
     Route: 048
     Dates: start: 2010
  9. CRESTOR [Concomitant]
     Indication: BLOOD CHOLESTEROL INCREASED
     Route: 048
     Dates: start: 2010
  10. CARDIZEM [Concomitant]
     Indication: TACHYCARDIA
     Route: 048
     Dates: start: 2009
  11. VAGIFEN [Concomitant]
     Indication: HORMONE REPLACEMENT THERAPY
     Dosage: 25 MICROGRAM/TWICW WEEKLY/VAGINAL
     Route: 048
     Dates: start: 2010
  12. OXYBUTYNIN [Concomitant]
     Indication: URINARY INCONTINENCE
     Route: 062
     Dates: start: 2008
  13. KRILL OIL [Concomitant]
     Indication: BLOOD CHOLESTEROL
     Route: 048
     Dates: start: 2009
  14. TRICOR [Concomitant]
     Indication: BLOOD CHOLESTEROL INCREASED
     Route: 048
     Dates: start: 2010
  15. CLARITIN-D [Concomitant]
     Indication: MULTIPLE ALLERGIES
     Dosage: 120-5MG
     Route: 048
     Dates: start: 201305
  16. LORATADINE [Concomitant]
     Indication: MULTIPLE ALLERGIES
     Route: 048
     Dates: start: 2007
  17. VIVELLE-DOT [Concomitant]
     Indication: HORMONE REPLACEMENT THERAPY
     Route: 062
     Dates: start: 20111014
  18. AMITIZA [Concomitant]
     Indication: GASTROINTESTINAL MOTILITY DISORDER
     Route: 048
     Dates: start: 2008
  19. FIBERCON [Concomitant]
     Indication: GASTROINTESTINAL MOTILITY DISORDER
     Route: 048
     Dates: start: 2008
  20. HYOSCYAMINE [Concomitant]
     Indication: GASTROINTESTINAL PAIN
     Route: 048
     Dates: start: 2004
  21. RANITIDINE [Concomitant]
     Indication: GASTROOESOPHAGEAL REFLUX DISEASE
     Route: 048
     Dates: start: 2010
  22. NEXIUM [Concomitant]
     Indication: GASTROOESOPHAGEAL REFLUX DISEASE
     Route: 048
     Dates: start: 2010
  23. OMEPRAZOLE [Concomitant]
     Indication: GASTROOESOPHAGEAL REFLUX DISEASE
     Route: 048
     Dates: start: 2010
  24. CARAFATE [Concomitant]
     Indication: GASTROOESOPHAGEAL REFLUX DISEASE
     Route: 048
     Dates: start: 2008
  25. PROBIOTIC [Concomitant]
     Indication: GASTROINTESTINAL MOTILITY DISORDER
     Route: 048
     Dates: start: 2011
  26. BEELITH [Concomitant]
     Indication: RENAL LITHIASIS PROPHYLAXIS
     Dosage: 362-20MG
     Route: 048
     Dates: start: 2012
  27. CYSTAQ COMPLEX [Concomitant]
     Indication: CYSTITIS INTERSTITIAL
     Route: 048
     Dates: start: 2012
  28. AMITRIPTYLINE [Concomitant]
     Indication: CYSTITIS INTERSTITIAL
     Route: 048
     Dates: start: 2012
  29. UREA [Concomitant]
     Indication: NAIL DYSTROPHY
     Dosage: 39, 40, 45%
     Route: 061
     Dates: start: 2012
  30. MINOXIDIL [Concomitant]
     Indication: ALOPECIA
     Route: 061
     Dates: start: 2012
  31. CLOBETASOL PROPIONATE [Concomitant]
     Indication: NAIL DYSTROPHY
     Route: 061
     Dates: start: 2011
  32. RESTASIS [Concomitant]
     Indication: DRY EYE
     Route: 047
     Dates: start: 20120411
  33. COQ10 [Concomitant]
     Route: 048
     Dates: start: 2013
  34. GENTEL [Concomitant]
     Indication: DRY EYE
     Route: 047
     Dates: start: 2012

REACTIONS (1)
  - Colitis [Recovered/Resolved]
